FAERS Safety Report 13820431 (Version 2)
Quarter: 2017Q3

REPORT INFORMATION
  Report Type: Report from Study
  Country: US (occurrence: US)
  Receive Date: 20170801
  Receipt Date: 20170807
  Transmission Date: 20171127
  Serious: Yes (Other)
  Sender: FDA-Public Use
  Company Number: US-ROCHE-1969105

PATIENT
  Age: 75 Year
  Sex: Female
  Weight: 65.83 kg

DRUGS (17)
  1. ACTEMRA [Suspect]
     Active Substance: TOCILIZUMAB
     Indication: TEMPORAL ARTERITIS
     Route: 042
     Dates: start: 2014
  2. ESBRIET [Suspect]
     Active Substance: PIRFENIDONE
     Indication: IDIOPATHIC PULMONARY FIBROSIS
     Dosage: 1 CAP X 2 TIMES A DAY
     Route: 065
     Dates: start: 201707
  3. ESBRIET [Suspect]
     Active Substance: PIRFENIDONE
     Dosage: ONE TABLET THREE TIMES A DAY
     Route: 065
     Dates: start: 20170627, end: 20170714
  4. ESBRIET [Suspect]
     Active Substance: PIRFENIDONE
     Dosage: ONE TWICE A DAY
     Route: 065
     Dates: start: 20170714
  5. ASPIRIN. [Concomitant]
     Active Substance: ASPIRIN
     Dosage: TAKING FOR LONG TIME
     Route: 065
  6. BENADRYL [Concomitant]
     Active Substance: DIPHENHYDRAMINE HYDROCHLORIDE
     Route: 065
     Dates: start: 2014
  7. ESCITALOPRAM [Concomitant]
     Active Substance: ESCITALOPRAM OXALATE
     Indication: DEPRESSION
     Route: 065
     Dates: start: 2014
  8. ATORVASTATIN [Concomitant]
     Active Substance: ATORVASTATIN
     Indication: HYPERTENSION
     Route: 065
     Dates: start: 201601
  9. SODIUM CHLORIDE. [Concomitant]
     Active Substance: SODIUM CHLORIDE
     Dosage: 0.9
     Route: 065
     Dates: start: 2014
  10. ESBRIET [Suspect]
     Active Substance: PIRFENIDONE
     Indication: INTERSTITIAL LUNG DISEASE
     Dosage: 3 CAPS 3 X A DAY
     Route: 065
     Dates: start: 201707
  11. AMLODIPINE BESYLATE. [Concomitant]
     Active Substance: AMLODIPINE BESYLATE
     Indication: DEPRESSION
     Route: 065
  12. CALCIUM CITRATE WITH VITAMIN D3 [Concomitant]
     Indication: TEMPORAL ARTERITIS
     Dosage: CALCIUM 600 MG, VITAMIN D 3 800 IU
     Route: 065
     Dates: start: 2007
  13. BUPROPION HCL ER [Concomitant]
     Active Substance: BUPROPION HYDROCHLORIDE
     Indication: DEPRESSION
     Route: 065
     Dates: start: 2012
  14. TRAZODONE [Concomitant]
     Active Substance: TRAZODONE HYDROCHLORIDE
     Indication: DEPRESSION
     Route: 048
     Dates: start: 2012
  15. LISINOPRIL. [Concomitant]
     Active Substance: LISINOPRIL
     Indication: HYPERTENSION
     Route: 065
     Dates: start: 2014
  16. ACTEMRA [Suspect]
     Active Substance: TOCILIZUMAB
     Route: 042
     Dates: start: 2014
  17. CHOLESTEROL [Concomitant]
     Active Substance: CHOLESTEROL
     Route: 065

REACTIONS (5)
  - Weight increased [Not Recovered/Not Resolved]
  - Hypersomnia [Not Recovered/Not Resolved]
  - Asthenia [Not Recovered/Not Resolved]
  - Interstitial lung disease [Unknown]
  - Fatigue [Not Recovered/Not Resolved]

NARRATIVE: CASE EVENT DATE: 201707
